FAERS Safety Report 7106642-7 (Version None)
Quarter: 2010Q4

REPORT INFORMATION
  Report Type: 
  Country: None (occurrence: None)
  Receive Date: 20101116
  Receipt Date: 20101112
  Transmission Date: 20110411
  Serious: Yes (Hospitalization)
  Sender: FDA-Public Use
  Company Number: US-ABBOTT-10P-163-0685135-00

PATIENT
  Sex: Male
  Weight: 106.69 kg

DRUGS (2)
  1. SIMCOR [Suspect]
     Indication: HYPERLIPIDAEMIA
     Dosage: 750/20 AT BEDTIME
     Dates: start: 20091001
  2. SIMCOR [Suspect]
     Dosage: 500/20

REACTIONS (3)
  - DIZZINESS [None]
  - FLUSHING [None]
  - SYNCOPE [None]
